FAERS Safety Report 7869331-7 (Version None)
Quarter: 2011Q4

REPORT INFORMATION
  Report Type: 
  Country: None (occurrence: None)
  Receive Date: 20111028
  Receipt Date: 20101230
  Transmission Date: 20120403
  Serious: No
  Sender: FDA-Public Use
  Company Number: US-AMGEN-USASP2010012857

PATIENT
  Age: 48 Year
  Sex: Male

DRUGS (2)
  1. ENBREL [Suspect]
     Indication: PSORIATIC ARTHROPATHY
     Dates: start: 20100301
  2. ENBREL [Suspect]
     Indication: PROSTATIC SPECIFIC ANTIGEN

REACTIONS (5)
  - COUGH [None]
  - DEVICE FAILURE [None]
  - BODY TEMPERATURE INCREASED [None]
  - MALAISE [None]
  - OROPHARYNGEAL PAIN [None]
